FAERS Safety Report 6603963-9 (Version None)
Quarter: 2010Q1

REPORT INFORMATION
  Report Type: 
  Country: None (occurrence: None)
  Receive Date: 20100226
  Receipt Date: 20090327
  Transmission Date: 20100710
  Serious: No
  Sender: FDA-Public Use
  Company Number: A0775892A

PATIENT
  Age: 39 Year
  Sex: Male

DRUGS (2)
  1. LAMOTRIGINE [Suspect]
     Indication: BIPOLAR DISORDER
     Dosage: 50MG AT NIGHT
     Route: 048
     Dates: start: 20090308, end: 20090325
  2. BUPROPION HCL [Concomitant]

REACTIONS (3)
  - ERYTHEMA [None]
  - SKIN DISCOLOURATION [None]
  - SKIN REACTION [None]
